FAERS Safety Report 17939240 (Version 1)
Quarter: 2020Q2

REPORT INFORMATION
  Report Type: Spontaneous
  Country: BR (occurrence: BR)
  Receive Date: 20200624
  Receipt Date: 20200624
  Transmission Date: 20200714
  Serious: Yes (Hospitalization, Other)
  Sender: FDA-Public Use
  Company Number: BR-GLAXOSMITHKLINE-BR2017GSK112946

PATIENT
  Sex: Female
  Weight: 53 kg

DRUGS (2)
  1. BENLYSTA [Suspect]
     Active Substance: BELIMUMAB
     Indication: SYSTEMIC LUPUS ERYTHEMATOSUS
     Dosage: 600 MG, UNK
     Dates: start: 20170509
  2. REUQUINOL (HYDROXYCHLOROQUINE SULFATE) [Concomitant]
     Active Substance: HYDROXYCHLOROQUINE SULFATE
     Indication: PRODUCT USED FOR UNKNOWN INDICATION
     Dosage: 400 MG, UNK

REACTIONS (20)
  - Nephritis [Unknown]
  - Condition aggravated [Unknown]
  - Product dose omission [Recovered/Resolved]
  - Underdose [Recovered/Resolved]
  - COVID-19 [Unknown]
  - Vitamin D deficiency [Unknown]
  - Arthralgia [Recovered/Resolved]
  - Systemic lupus erythematosus [Unknown]
  - Pain in extremity [Recovered/Resolved]
  - Oral herpes [Unknown]
  - Nail bed inflammation [Unknown]
  - Inappropriate schedule of product administration [Recovered/Resolved]
  - Renal impairment [Unknown]
  - Blood pressure abnormal [Unknown]
  - Vocal cord disorder [Unknown]
  - Ill-defined disorder [Unknown]
  - Weight decreased [Unknown]
  - Influenza [Unknown]
  - Herpes virus infection [Unknown]
  - Overdose [Unknown]
